FAERS Safety Report 5968969-1 (Version None)
Quarter: 2008Q4

REPORT INFORMATION
  Report Type: 
  Country: None (occurrence: None)
  Receive Date: 20081126
  Receipt Date: 20081119
  Transmission Date: 20090506
  Serious: Yes (Life-Threatening, Hospitalization, Other)
  Sender: FDA-Public Use
  Company Number: CA-ROCHE-591747

PATIENT
  Age: 53 Year
  Sex: Male
  Weight: 72.5 kg

DRUGS (3)
  1. XELODA [Suspect]
     Indication: BILE DUCT CANCER
     Dosage: STRENGTH REPORTED AS 500 MG AND 150 MG
     Route: 048
     Dates: start: 20080912, end: 20080916
  2. FERROUS SULFATE TAB [Concomitant]
     Route: 048
     Dates: end: 20080916
  3. ATIVAN [Concomitant]
     Dosage: FREQUENCY: PRN
     Route: 048

REACTIONS (4)
  - CONFUSIONAL STATE [None]
  - LOSS OF CONSCIOUSNESS [None]
  - PERICARDITIS [None]
  - TORSADE DE POINTES [None]
